FAERS Safety Report 9999988 (Version 1)
Quarter: 2014Q1

REPORT INFORMATION
  Report Type: Spontaneous
  Country: FR (occurrence: FR)
  Receive Date: 20140312
  Receipt Date: 20140312
  Transmission Date: 20141002
  Serious: Yes (Hospitalization)
  Sender: FDA-Public Use
  Company Number: PHHY2014FR028097

PATIENT
  Age: 76 Year
  Sex: Male

DRUGS (8)
  1. TAMSULOSIN SANDOZ [Suspect]
     Indication: BENIGN PROSTATIC HYPERPLASIA
     Dosage: 1 DF, QD
     Route: 048
  2. COOLMETEC [Suspect]
     Indication: HYPERTENSION
     Dosage: 1 DF, QD
     Route: 048
     Dates: end: 20080816
  3. PREDNISONE [Concomitant]
     Indication: PRODUCT USED FOR UNKNOWN INDICATION
     Route: 065
  4. ZOLPIDEM [Concomitant]
     Indication: PRODUCT USED FOR UNKNOWN INDICATION
     Route: 065
  5. TRIMETAZIDINE [Concomitant]
     Indication: PRODUCT USED FOR UNKNOWN INDICATION
     Route: 065
  6. DOLIPRANE [Concomitant]
     Indication: PRODUCT USED FOR UNKNOWN INDICATION
     Route: 065
  7. MONONAXY [Concomitant]
     Indication: PRODUCTIVE COUGH
     Route: 065
     Dates: start: 20080813
  8. PREDNISOLONE [Concomitant]
     Indication: PRODUCTIVE COUGH
     Route: 065
     Dates: start: 20080813

REACTIONS (3)
  - Malaise [Recovered/Resolved]
  - Dizziness [Recovered/Resolved]
  - Orthostatic hypotension [Recovering/Resolving]
